FAERS Safety Report 17000763 (Version 2)
Quarter: 2019Q4

REPORT INFORMATION
  Report Type: Spontaneous
  Country: US (occurrence: US)
  Receive Date: 20191106
  Receipt Date: 20191121
  Transmission Date: 20200122
  Serious: Yes (Hospitalization, Other)
  Sender: FDA-Public Use
  Company Number: US-TEVA-2019-US-1132106

PATIENT
  Age: 57 Year
  Sex: Female

DRUGS (3)
  1. HEPARIN [Suspect]
     Active Substance: HEPARIN SODIUM
     Indication: ANTICOAGULANT THERAPY
     Route: 058
  2. KETOROLAC [Suspect]
     Active Substance: KETOROLAC TROMETHAMINE
     Route: 042
  3. ENOXAPARIN [Suspect]
     Active Substance: ENOXAPARIN
     Indication: ANTICOAGULANT THERAPY
     Route: 058

REACTIONS (4)
  - Spinal cord compression [Recovering/Resolving]
  - Paraplegia [Not Recovered/Not Resolved]
  - Spinal epidural haematoma [Recovering/Resolving]
  - Medication error [Unknown]
